FAERS Safety Report 14515480 (Version 2)
Quarter: 2018Q2

REPORT INFORMATION
  Report Type: Spontaneous
  Country: US (occurrence: US)
  Receive Date: 20180210
  Receipt Date: 20180503
  Transmission Date: 20180711
  Serious: Yes (Other)
  Sender: FDA-Public Use
  Company Number: US-AMGEN-USASP2018015789

PATIENT
  Age: 76 Year
  Sex: Female

DRUGS (1)
  1. PROLIA [Suspect]
     Active Substance: DENOSUMAB
     Indication: OSTEOPOROSIS POSTMENOPAUSAL
     Dosage: UNK, Q6MO
     Route: 065
     Dates: start: 201612

REACTIONS (14)
  - Sensitivity of teeth [Unknown]
  - Oral pain [Unknown]
  - Endodontic procedure [Unknown]
  - Drug dose omission [Unknown]
  - Otorrhoea [Not Recovered/Not Resolved]
  - Knee arthroplasty [Unknown]
  - Artificial crown procedure [Unknown]
  - Gingival disorder [Unknown]
  - Tooth fracture [Unknown]
  - Lip pain [Unknown]
  - Injection site pain [Unknown]
  - Bruxism [Unknown]
  - Tooth disorder [Unknown]
  - Glossitis [Unknown]

NARRATIVE: CASE EVENT DATE: 20171226
